FAERS Safety Report 5856034-3 (Version None)
Quarter: 2008Q3

REPORT INFORMATION
  Report Type: 
  Country: None (occurrence: None)
  Receive Date: 20080825
  Receipt Date: 20080811
  Transmission Date: 20090109
  Serious: Yes (Other)
  Sender: FDA-Public Use
  Company Number: US-BAYER-200813348BCC

PATIENT
  Age: 19 Year
  Sex: Male

DRUGS (1)
  1. BACTINE LIQUID [Suspect]
     Indication: INJURY
     Route: 047
     Dates: start: 20071208

REACTIONS (2)
  - BLINDNESS TRANSIENT [None]
  - EYE IRRITATION [None]
